FAERS Safety Report 4993230-1 (Version None)
Quarter: 2006Q1

REPORT INFORMATION
  Report Type: 
  Country: None (occurrence: None)
  Receive Date: 20060314
  Receipt Date: 20050429
  Transmission Date: 20060701
  Serious: Yes (Other)
  Sender: FDA-Public Use
  Company Number: 200414585BCC

PATIENT
  Age: 67 Year
  Sex: Female
  Weight: 63.5036 kg

DRUGS (12)
  1. ALEVE [Suspect]
     Indication: BACK PAIN
     Dosage: 220-440 MG
     Dates: start: 20040901
  2. SYNTHROID [Concomitant]
  3. CRESTOR [Concomitant]
  4. LOTREL [Concomitant]
  5. QUININE SULFATE [Concomitant]
  6. NEXIUM [Concomitant]
  7. ZELNORM [Concomitant]
  8. ZYRTEC [Concomitant]
  9. LASIX [Concomitant]
  10. SONATA [Concomitant]
  11. QUININE SULFATE [Concomitant]
  12. EVISTA [Concomitant]

REACTIONS (15)
  - ARTHROPATHY [None]
  - BRONCHITIS BACTERIAL [None]
  - CHEST PAIN [None]
  - DYSPHAGIA [None]
  - EROSIVE OESOPHAGITIS [None]
  - GASTRIC ULCER [None]
  - GASTRITIS EROSIVE [None]
  - GLOSSODYNIA [None]
  - MUSCULOSKELETAL CHEST PAIN [None]
  - PLEURISY [None]
  - SPEECH DISORDER [None]
  - STOMATITIS [None]
  - SWOLLEN TONGUE [None]
  - TONGUE DISCOLOURATION [None]
  - TONGUE DISORDER [None]
